FAERS Safety Report 8730776 (Version 4)
Quarter: 2012Q4

REPORT INFORMATION
  Report Type: 
  Country: CA (occurrence: CA)
  Receive Date: 20120818
  Receipt Date: 20121011
  Transmission Date: 20130627
  Serious: Yes (Other)
  Sender: FDA-Public Use
  Company Number: CA-BAXTER-2012BAX014098

PATIENT
  Sex: Female

DRUGS (3)
  1. EXTRANEAL [Suspect]
     Indication: CONTINUOUS CYCLING PERITONEAL DIALYSIS
     Route: 033
     Dates: start: 20120730, end: 20120809
  2. EXTRANEAL [Suspect]
     Indication: CONTINUOUS AMBULATORY PERITONEAL DIALYSIS
     Route: 033
  3. UNSPECIFIED INGREDIENT [Suspect]

REACTIONS (9)
  - Eye swelling [Recovered/Resolved]
  - Pruritus generalised [Recovered/Resolved]
  - Crying [Recovered/Resolved]
  - Feeling abnormal [Recovered/Resolved]
  - Insomnia [Recovered/Resolved]
  - Rash [Recovered/Resolved]
  - Urticaria [Recovered/Resolved]
  - Drug hypersensitivity [Recovered/Resolved]
  - Pruritus [Recovered/Resolved]
